FAERS Safety Report 4294857-5 (Version None)
Quarter: 2004Q1

REPORT INFORMATION
  Report Type: 
  Country: None (occurrence: None)
  Receive Date: 20040216
  Receipt Date: 20030129
  Transmission Date: 20041129
  Serious: No
  Sender: FDA-Public Use
  Company Number: US-GLAXOSMITHKLINE-A0394528A

PATIENT
  Sex: Female

DRUGS (2)
  1. LAMICTAL [Suspect]
     Indication: ANGER
     Dosage: 100MG PER DAY
     Route: 048
  2. ZYPREXA [Concomitant]

REACTIONS (1)
  - RASH [None]
